FAERS Safety Report 19460175 (Version 2)
Quarter: 2021Q3

REPORT INFORMATION
  Report Type: Spontaneous
  Country: US (occurrence: US)
  Receive Date: 20210625
  Receipt Date: 20210923
  Transmission Date: 20211014
  Serious: Yes (Other)
  Sender: FDA-Public Use
  Company Number: US-DRREDDYS-SPO/USA/21/0136728

PATIENT
  Age: 70 Year
  Sex: Female

DRUGS (16)
  1. INSULIN LISPRO [Concomitant]
     Active Substance: INSULIN LISPRO
     Dosage: INCREASED TO 15 UNITS WITH AN ADDITIONAL 2 UNITS FOR EVERY 50 MG/DL GLUCOSE
  2. DEXAMETHASONE SODIUM PHOSPHATE. [Suspect]
     Active Substance: DEXAMETHASONE SODIUM PHOSPHATE
     Indication: ADENOCARCINOMA PANCREAS
     Dosage: ON EVERY OTHER WEDNESDAY
     Route: 042
  3. INSULIN DETEMIR [Concomitant]
     Active Substance: INSULIN DETEMIR
     Indication: TYPE 2 DIABETES MELLITUS
     Dosage: 30 UNITS ON THE CHEMOTHERAPY DAY
  4. PIOGLITAZONE. [Concomitant]
     Active Substance: PIOGLITAZONE
     Indication: TYPE 2 DIABETES MELLITUS
  5. INSULIN DETEMIR [Concomitant]
     Active Substance: INSULIN DETEMIR
  6. INSULIN DETEMIR [Concomitant]
     Active Substance: INSULIN DETEMIR
     Dosage: DECREASED TO 30 UNITS IN THE PM
  7. INSULIN DETEMIR [Concomitant]
     Active Substance: INSULIN DETEMIR
     Dosage: DECREASED TO 50 UNITS IN THE AM
  8. INSULIN DETEMIR [Concomitant]
     Active Substance: INSULIN DETEMIR
     Dosage: 40 UNITS ON THE FOLLOWING NIGHT
  9. INSULIN DETEMIR [Concomitant]
     Active Substance: INSULIN DETEMIR
     Dosage: INCREASED FORM 30 TO 45 UNITS ON THE CHEMOTHERAPY DAY
  10. INSULIN LISPRO [Concomitant]
     Active Substance: INSULIN LISPRO
  11. INSULIN LISPRO [Concomitant]
     Active Substance: INSULIN LISPRO
     Dosage: INCREASED TO 15 UNITS WITH AN ADDITIONAL 2 UNITS FOR EVERY 50 MG/DL GLUCOSE
  12. PACLITAXEL. [Concomitant]
     Active Substance: PACLITAXEL
     Indication: ADENOCARCINOMA PANCREAS
     Route: 042
  13. GEMCITABINE. [Concomitant]
     Active Substance: GEMCITABINE
     Indication: ADENOCARCINOMA PANCREAS
     Route: 042
  14. INSULIN DETEMIR [Concomitant]
     Active Substance: INSULIN DETEMIR
     Dosage: 40 UNITS AT NIGHT
  15. INSULIN LISPRO [Concomitant]
     Active Substance: INSULIN LISPRO
     Indication: TYPE 2 DIABETES MELLITUS
     Dosage: 3 UNITS FOR EVERY 50 MG/DL GLUCOSE ABOVE 200 MG/DL ON THE FIRST AND SECOND DAY FOLLOWING CHEMOTHERAP
  16. INSULIN DETEMIR [Concomitant]
     Active Substance: INSULIN DETEMIR
     Dosage: 50 UNITS IN THE MORNING

REACTIONS (1)
  - Hyperglycaemia [Recovered/Resolved]
